FAERS Safety Report 21694809 (Version 1)
Quarter: 2022Q4

REPORT INFORMATION
  Report Type: Spontaneous
  Country: US (occurrence: None)
  Receive Date: 20221207
  Receipt Date: 20221207
  Transmission Date: 20230113
  Serious: No
  Sender: FDA-Public Use
  Company Number: 2022A394040

PATIENT
  Sex: Female
  Weight: 57.2 kg

DRUGS (1)
  1. SYMBICORT [Suspect]
     Active Substance: BUDESONIDE\FORMOTEROL FUMARATE DIHYDRATE
     Indication: Dyspnoea
     Route: 055

REACTIONS (11)
  - Dyspnoea [Not Recovered/Not Resolved]
  - Stomatitis [Not Recovered/Not Resolved]
  - Oropharyngeal blistering [Not Recovered/Not Resolved]
  - Insomnia [Not Recovered/Not Resolved]
  - Eye disorder [Unknown]
  - Diabetes mellitus [Unknown]
  - Haemorrhage [Unknown]
  - Intentional device misuse [Unknown]
  - Product dose omission issue [Unknown]
  - Wrong technique in device usage process [Unknown]
  - Gastrointestinal mucosal disorder [Unknown]
